FAERS Safety Report 7358483-3 (Version None)
Quarter: 2011Q1

REPORT INFORMATION
  Report Type: 
  Country: None (occurrence: None)
  Receive Date: 20110317
  Receipt Date: 20110208
  Transmission Date: 20110831
  Serious: Yes (Hospitalization)
  Sender: FDA-Public Use
  Company Number: CO-ELI_LILLY_AND_COMPANY-CO201102002658

PATIENT
  Age: 51 Year
  Sex: Female

DRUGS (9)
  1. HYDROCHLORTHIAZID [Concomitant]
     Dosage: UNK, UNK
  2. ACETYLSALICYLIC ACID [Concomitant]
     Dosage: UNK, UNK
  3. LOVASTATIN [Concomitant]
     Dosage: UNK, UNK
  4. BYETTA [Suspect]
     Indication: TYPE 2 DIABETES MELLITUS
     Dosage: 5 UG, 2/D
     Route: 058
     Dates: start: 20110117
  5. METFORMIN HCL [Concomitant]
     Indication: HYPOGLYCAEMIA
     Dosage: UNK, UNK
     Route: 048
  6. FUROSEMIDE [Concomitant]
     Dosage: UNK, UNK
  7. ENALAPRIL [Concomitant]
     Dosage: UNK, UNK
  8. AMLODIPINE [Concomitant]
     Dosage: UNK, UNK
  9. INSULIN NPH                        /01223208/ [Concomitant]
     Dosage: UNK, UNK

REACTIONS (7)
  - OFF LABEL USE [None]
  - VIRAL INFECTION [None]
  - ANXIETY [None]
  - HYPOKALAEMIA [None]
  - STRESS [None]
  - DIARRHOEA [None]
  - HYPOGLYCAEMIA [None]
